FAERS Safety Report 6966268-2 (Version None)
Quarter: 2010Q3

REPORT INFORMATION
  Report Type: 
  Country: None (occurrence: None)
  Receive Date: 20100903
  Receipt Date: 20100823
  Transmission Date: 20110219
  Serious: Yes (Hospitalization)
  Sender: FDA-Public Use
  Company Number: US-ELI_LILLY_AND_COMPANY-US200912005346

PATIENT
  Sex: Female

DRUGS (8)
  1. FORTEO [Suspect]
     Indication: OSTEOPOROSIS
     Dosage: 20 UG, DAILY (1/D)
     Dates: start: 20090601, end: 20091221
  2. EVISTA [Suspect]
     Indication: OSTEOPOROSIS
     Dosage: 60 MG, DAILY (1/D)
  3. EVISTA [Suspect]
     Dosage: 60 MG, DAILY (1/D)
  4. ANTIHYPERTENSIVES [Concomitant]
  5. ANALGESICS [Concomitant]
     Indication: PAIN
  6. MUSCLE RELAXANTS [Concomitant]
  7. LYRICA [Concomitant]
  8. CELEBREX [Concomitant]

REACTIONS (12)
  - ARTHRALGIA [None]
  - ARTHROPATHY [None]
  - BACK INJURY [None]
  - BACK PAIN [None]
  - BONE PAIN [None]
  - COLECTOMY [None]
  - FALL [None]
  - GAIT DISTURBANCE [None]
  - GASTROINTESTINAL DISORDER [None]
  - GRIP STRENGTH DECREASED [None]
  - PAIN [None]
  - SWELLING [None]
